FAERS Safety Report 24967992 (Version 1)
Quarter: 2025Q1

REPORT INFORMATION
  Report Type: Report from Study
  Country: TW (occurrence: TW)
  Receive Date: 20250214
  Receipt Date: 20250214
  Transmission Date: 20250409
  Serious: Yes (Hospitalization)
  Sender: JOHNSON AND JOHNSON
  Company Number: TW-JNJFOC-20250123585

PATIENT
  Age: 63 Year
  Sex: Female

DRUGS (3)
  1. SIMPONI [Suspect]
     Active Substance: GOLIMUMAB
     Indication: Rheumatoid arthritis
     Route: 058
     Dates: start: 2015
  2. CURAM [AMOXICILLIN;CLAVULANATE POTASSIUM] [Concomitant]
     Indication: Cellulitis
     Route: 048
  3. SPERSIN [BACITRACIN;NEOMYCIN SULFATE;POLYMYXIN B SULFATE] [Concomitant]
     Indication: Cellulitis
     Route: 048

REACTIONS (5)
  - Cellulitis [Not Recovered/Not Resolved]
  - Joint swelling [Recovered/Resolved]
  - Back pain [Recovered/Resolved]
  - Fall [Not Recovered/Not Resolved]
  - Arthralgia [Recovered/Resolved]

NARRATIVE: CASE EVENT DATE: 20241125
